FAERS Safety Report 8442864-0 (Version None)
Quarter: 2012Q2

REPORT INFORMATION
  Report Type: 
  Country: None (occurrence: None)
  Receive Date: 20120615
  Receipt Date: 20120612
  Transmission Date: 20120825
  Serious: Yes (Hospitalization)
  Sender: FDA-Public Use
  Company Number: CL-JNJFOC-20080905533

PATIENT
  Sex: Female
  Weight: 83 kg

DRUGS (15)
  1. GOLIMUMAB [Suspect]
     Indication: RHEUMATOID ARTHRITIS
     Route: 058
     Dates: start: 20070404
  2. GOLIMUMAB [Suspect]
     Route: 058
     Dates: start: 20080624
  3. GOLIMUMAB [Suspect]
     Route: 058
     Dates: start: 20080717
  4. METHOTREXATE [Suspect]
     Indication: RHEUMATOID ARTHRITIS
     Route: 048
     Dates: start: 20080330, end: 20080623
  5. ACETAMINOPHEN [Concomitant]
     Dates: start: 20020828
  6. CALCIUM CARBONATE [Concomitant]
     Route: 048
     Dates: start: 20001227
  7. GOLIMUMAB [Suspect]
     Route: 058
     Dates: start: 20080428
  8. GOLIMUMAB [Suspect]
     Route: 058
     Dates: start: 20080526
  9. GOLIMUMAB [Suspect]
     Route: 058
     Dates: start: 20080824
  10. METHOTREXATE [Suspect]
     Route: 048
  11. PIROXICAM [Concomitant]
     Route: 048
     Dates: start: 20040112
  12. PREDNISONE [Concomitant]
     Route: 048
     Dates: start: 20070101
  13. GOLIMUMAB [Suspect]
     Dosage: MOST RECENT DOSE
     Route: 058
     Dates: start: 20080922
  14. FAMOTIDINE [Concomitant]
     Route: 048
     Dates: start: 20080326
  15. LEUCOVORIN CALCIUM [Concomitant]
     Dates: start: 20040526

REACTIONS (1)
  - OSTEOMYELITIS [None]
